FAERS Safety Report 14603503 (Version 1)
Quarter: 2018Q1

REPORT INFORMATION
  Report Type: Spontaneous
  Country: DE (occurrence: DE)
  Receive Date: 20180306
  Receipt Date: 20180306
  Transmission Date: 20180509
  Serious: Yes (Other)
  Sender: FDA-Public Use
  Company Number: DE-CONCORDIA PHARMACEUTICALS INC.-E2B_00010395

PATIENT
  Age: 80 Year
  Sex: Male
  Weight: 77 kg

DRUGS (1)
  1. PREDNISOLONE. [Suspect]
     Active Substance: PREDNISOLONE
     Indication: RHEUMATIC DISORDER
     Dosage: INITIAL: 3DF IN THE MORNING ; 2DF IN THE EVENING; TAPERING: 3DF IN THE MORNING, 1DF IN THE EVENING
     Dates: start: 20171118

REACTIONS (6)
  - Blood creatine phosphokinase MB increased [Not Recovered/Not Resolved]
  - Myoglobin blood increased [Not Recovered/Not Resolved]
  - Swelling face [Not Recovered/Not Resolved]
  - Pain in extremity [Not Recovered/Not Resolved]
  - Troponin I increased [Not Recovered/Not Resolved]
  - Peripheral swelling [Not Recovered/Not Resolved]

NARRATIVE: CASE EVENT DATE: 20171101
